FAERS Safety Report 4482038-1 (Version None)
Quarter: 2004Q4

REPORT INFORMATION
  Report Type: 
  Country: None (occurrence: None)
  Receive Date: 20041022
  Receipt Date: 20041013
  Transmission Date: 20050328
  Serious: Yes (Hospitalization)
  Sender: FDA-Public Use
  Company Number: DE-BRISTOL-MYERS SQUIBB COMPANY-12731931

PATIENT
  Age: 36 Year
  Sex: Male

DRUGS (2)
  1. ABILIFY [Suspect]
     Indication: SCHIZOPHRENIA, PARANOID TYPE
     Dosage: INITIATED AT 30 MG/DAY, DECREASED TO 15 MG/DAY ON 24-SEP-2004 AND CONTINUED.
     Route: 048
     Dates: start: 20040827
  2. PROMETHAZINE [Concomitant]
     Dates: start: 20040924

REACTIONS (1)
  - INTENTIONAL SELF-INJURY [None]
